FAERS Safety Report 14775995 (Version 6)
Quarter: 2018Q4

REPORT INFORMATION
  Report Type: Report from Study
  Country: IT (occurrence: IT)
  Receive Date: 20180418
  Receipt Date: 20181220
  Transmission Date: 20190204
  Serious: Yes (Other)
  Sender: FDA-Public Use
  Company Number: IT-CELGENEUS-ITA-20180404331

PATIENT
  Age: 46 Year
  Sex: Male
  Weight: 66 kg

DRUGS (14)
  1. ACYCLOVIR. [Concomitant]
     Active Substance: ACYCLOVIR
     Indication: HERPES SIMPLEX
     Dosage: 800 MILLIGRAM
     Route: 048
     Dates: start: 20170413, end: 20180517
  2. GLARGINE INSULIN [Concomitant]
     Active Substance: INSULIN GLARGINE
     Indication: DIABETES MELLITUS
     Dosage: 6 IU (INTERNATIONAL UNIT)
     Route: 058
     Dates: start: 20170411, end: 20180517
  3. LISPRO INSULIN [Concomitant]
     Active Substance: INSULIN LISPRO
     Indication: DIABETES MELLITUS
     Dosage: 5 IU (INTERNATIONAL UNIT)
     Route: 058
     Dates: start: 20170411, end: 20180517
  4. CC-5013 [Suspect]
     Active Substance: LENALIDOMIDE
     Indication: DIFFUSE LARGE B-CELL LYMPHOMA
     Dosage: 15 MILLIGRAM
     Route: 048
     Dates: start: 20170413
  5. PREDNISONE. [Suspect]
     Active Substance: PREDNISONE
     Indication: DIFFUSE LARGE B-CELL LYMPHOMA
     Dosage: 100 MILLIGRAM
     Route: 048
     Dates: start: 20170413, end: 20171006
  6. LISPRO INSULIN [Concomitant]
     Active Substance: INSULIN LISPRO
     Dosage: 6 IU (INTERNATIONAL UNIT)
     Route: 058
     Dates: start: 20170411, end: 20180517
  7. TRIMETOPRIM/SULFAMET [Concomitant]
     Indication: ANTIFUNGAL PROPHYLAXIS
     Dosage: 160/800MG
     Route: 048
     Dates: start: 20170415, end: 20180517
  8. IALURONIC ACID [Concomitant]
     Indication: ORAL DISORDER
     Route: 065
     Dates: start: 20171117, end: 20180517
  9. DOXORUBICIN [Suspect]
     Active Substance: DOXORUBICIN
     Indication: DIFFUSE LARGE B-CELL LYMPHOMA
     Dosage: 75 MILLIGRAM/SQ. METER
     Route: 041
     Dates: start: 20170413, end: 20171006
  10. CYCLOPHOSPHAMIDE. [Suspect]
     Active Substance: CYCLOPHOSPHAMIDE
     Indication: DIFFUSE LARGE B-CELL LYMPHOMA
     Dosage: 1125 MILLIGRAM
     Route: 041
     Dates: start: 20170413, end: 20171006
  11. VINCRISTINE [Suspect]
     Active Substance: VINCRISTINE
     Indication: DIFFUSE LARGE B-CELL LYMPHOMA
     Dosage: 2 MILLIGRAM/SQ. METER
     Route: 041
     Dates: start: 20170413, end: 20171006
  12. LISPRO INSULIN [Concomitant]
     Active Substance: INSULIN LISPRO
     Dosage: 4 IU (INTERNATIONAL UNIT)
     Route: 058
     Dates: start: 20170411, end: 20180517
  13. RITUXIMAB. [Suspect]
     Active Substance: RITUXIMAB
     Indication: DIFFUSE LARGE B-CELL LYMPHOMA
     Dosage: 560 MICROGRAM/SQ. METER
     Route: 041
     Dates: start: 20170414, end: 20171006
  14. RANITIDINE. [Concomitant]
     Active Substance: RANITIDINE
     Indication: GASTRITIS PROPHYLAXIS
     Dosage: 150 MILLIGRAM
     Route: 048
     Dates: start: 20170413

REACTIONS (1)
  - Squamous cell carcinoma of the tongue [Not Recovered/Not Resolved]

NARRATIVE: CASE EVENT DATE: 20180323
